FAERS Safety Report 7833042-4 (Version None)
Quarter: 2011Q4

REPORT INFORMATION
  Report Type: 
  Country: None (occurrence: None)
  Receive Date: 20111024
  Receipt Date: 20111011
  Transmission Date: 20120403
  Serious: Yes (Other)
  Sender: FDA-Public Use
  Company Number: JP-RANBAXY-2011RR-49604

PATIENT
  Age: 67 Year
  Sex: Male

DRUGS (7)
  1. FLUCONAZOLE [Suspect]
     Indication: PRODUCT USED FOR UNKNOWN INDICATION
     Route: 048
  2. HEPARIN [Concomitant]
     Indication: ANTICOAGULANT THERAPY
     Route: 065
  3. FLUCONAZOLE [Suspect]
     Dosage: 200 MG/ DAY
     Route: 065
  4. VORICONAZOLE [Suspect]
     Indication: PROPHYLAXIS
     Dosage: 200 MG, BID
     Route: 042
  5. WARFARIN SODIUM [Suspect]
     Indication: DEEP VEIN THROMBOSIS
     Dosage: 2 MG/DAY
     Route: 065
  6. WARFARIN SODIUM [Suspect]
     Dosage: 1 MG/DAY
     Route: 065
  7. WARFARIN SODIUM [Suspect]
     Dosage: 0.5 MG/DAY
     Route: 065

REACTIONS (2)
  - DRUG LEVEL INCREASED [None]
  - DRUG INTERACTION [None]
